FAERS Safety Report 5469789-7 (Version None)
Quarter: 2007Q3

REPORT INFORMATION
  Report Type: 
  Country: None (occurrence: None)
  Receive Date: 20070927
  Receipt Date: 20070726
  Transmission Date: 20080115
  Serious: No
  Sender: FDA-Public Use
  Company Number: US-AMGEN-US235946

PATIENT

DRUGS (5)
  1. NEUPOGEN [Suspect]
     Indication: CHEMOTHERAPY
     Route: 065
  2. GEMCITABINE HCL [Concomitant]
     Route: 065
  3. TARCEVA [Concomitant]
     Route: 065
  4. GUAIFENESIN [Concomitant]
     Route: 065
  5. PSEUDOEPHEDRINE HCL [Concomitant]
     Route: 065

REACTIONS (2)
  - PLATELET COUNT INCREASED [None]
  - SINUSITIS [None]
